FAERS Safety Report 24108772 (Version 1)
Quarter: 2024Q3

REPORT INFORMATION
  Report Type: Spontaneous
  Country: CN (occurrence: CN)
  Receive Date: 20240718
  Receipt Date: 20240718
  Transmission Date: 20241017
  Serious: Yes (Hospitalization, Other)
  Sender: RANBAXY
  Company Number: CN-SUN PHARMACEUTICAL INDUSTRIES LTD-2024R1-456968

PATIENT
  Age: 43 Year
  Sex: Female

DRUGS (2)
  1. DECITABINE [Suspect]
     Active Substance: DECITABINE
     Indication: Peripheral T-cell lymphoma unspecified
     Dosage: 15 MILLIGRAM/SQ. METER DAY 1 TO 5
     Route: 065
  2. CAMRELIZUMAB [Suspect]
     Active Substance: CAMRELIZUMAB
     Indication: Peripheral T-cell lymphoma unspecified
     Dosage: 200 MILLIGRAM  EVERY 3 WEEKS
     Route: 065

REACTIONS (3)
  - Myelosuppression [Unknown]
  - Pneumococcal infection [Unknown]
  - Therapy partial responder [Unknown]
